FAERS Safety Report 10366503 (Version 1)
Quarter: 2014Q3

REPORT INFORMATION
  Report Type: Spontaneous
  Country: US (occurrence: US)
  Receive Date: 20140806
  Receipt Date: 20140806
  Transmission Date: 20150326
  Serious: Yes (Life-Threatening)
  Sender: FDA-Public Use
  Company Number: US-PFIZER INC-2014218024

PATIENT
  Age: 11 Year
  Sex: Female

DRUGS (5)
  1. ZANTAC [Concomitant]
     Active Substance: RANITIDINE HYDROCHLORIDE
     Dosage: 150 MG, DAILY (TAKE 1 TABLET DAILY FOR 30 DAYS)
     Route: 048
  2. CELLCEPT [Concomitant]
     Active Substance: MYCOPHENOLATE MOFETIL\MYCOPHENOLATE MOFETIL HYDROCHLORIDE
     Dosage: 3.5 ML, 2X/DAY (200 MG/ML; TAKE 3.5 ML 2 TIMES A DAY)
     Route: 048
  3. PREDNISOLONE. [Concomitant]
     Active Substance: PREDNISOLONE
     Dosage: 6 ML, DAILY (15 MG/5 ML; TAKE 6 ML DAILY FOR 60 DAYS)
     Route: 048
  4. RAPAMUNE [Suspect]
     Active Substance: SIROLIMUS
     Indication: PROPHYLAXIS AGAINST TRANSPLANT REJECTION
     Dosage: 1 MG/ML, DAILY (2.5 MG, DAILY)
     Route: 048
     Dates: start: 20090517
  5. COREG [Concomitant]
     Active Substance: CARVEDILOL
     Dosage: 6.250 MG, DAILY (TAKE 1 TABLET (3.125 MG) EVERY 12 HOURS WITH FOOD)
     Route: 048

REACTIONS (3)
  - Transplant rejection [Recovered/Resolved]
  - Off label use [Unknown]
  - Drug level decreased [Unknown]

NARRATIVE: CASE EVENT DATE: 2009
